FAERS Safety Report 11225020 (Version 1)
Quarter: 2015Q2

REPORT INFORMATION
  Report Type: Spontaneous
  Country: US (occurrence: None)
  Receive Date: 20150626
  Receipt Date: 20150626
  Transmission Date: 20150821
  Serious: No
  Sender: FDA-Public Use
  Company Number: None

PATIENT
  Age: 56 Year
  Sex: Female

DRUGS (1)
  1. STIVARGA [Suspect]
     Active Substance: REGORAFENIB
     Indication: RECTAL CANCER
     Route: 048
     Dates: start: 20150602, end: 20150623

REACTIONS (9)
  - Erythema [None]
  - Pain of skin [None]
  - Discomfort [None]
  - Dysphagia [None]
  - Tongue disorder [None]
  - Blood pressure increased [None]
  - Fatigue [None]
  - Weight decreased [None]
  - Hyperkeratosis [None]

NARRATIVE: CASE EVENT DATE: 20150614
